FAERS Safety Report 7472420-2 (Version None)
Quarter: 2011Q2

REPORT INFORMATION
  Report Type: 
  Country: None (occurrence: None)
  Receive Date: 20110511
  Receipt Date: 20110427
  Transmission Date: 20111010
  Serious: Yes (Other)
  Sender: FDA-Public Use
  Company Number: PHHY2011BR36910

PATIENT
  Sex: Female

DRUGS (2)
  1. RASILEZ AMLO [Suspect]
     Dosage: 300/10 MG, Q12H
  2. RASILEZ AMLO [Suspect]
     Dosage: 300/10 MG

REACTIONS (3)
  - RENAL DISORDER [None]
  - PROTEIN URINE PRESENT [None]
  - BLOOD PRESSURE INCREASED [None]
